FAERS Safety Report 9200221 (Version 1)
Quarter: 2013Q1

REPORT INFORMATION
  Report Type: Spontaneous
  Country: US (occurrence: US)
  Receive Date: 20130329
  Receipt Date: 20130329
  Transmission Date: 20140127
  Serious: Yes (Other)
  Sender: FDA-Public Use
  Company Number: US-TEVA-394526USA

PATIENT
  Age: 61 Year
  Sex: Female

DRUGS (1)
  1. TREANDA [Suspect]
     Indication: NON-HODGKIN^S LYMPHOMA UNSPECIFIED HISTOLOGY INDOLENT
     Route: 042

REACTIONS (3)
  - Blood bilirubin increased [Recovered/Resolved]
  - Hepatic enzyme increased [Recovered/Resolved]
  - Neutrophil count abnormal [Not Recovered/Not Resolved]
